FAERS Safety Report 8102258-4 (Version None)
Quarter: 2012Q1

REPORT INFORMATION
  Report Type: 
  Country: None (occurrence: None)
  Receive Date: 20120131
  Receipt Date: 20120131
  Transmission Date: 20120608
  Serious: Yes (Other)
  Sender: FDA-Public Use
  Company Number: None

PATIENT
  Age: 56 Year
  Sex: Male
  Weight: 89.1 kg

DRUGS (2)
  1. LAMIVUDINE + ZIDOVUDINE [Suspect]
     Dosage: 150/300 MG, ORAL
     Route: 048
     Dates: start: 20111212, end: 20111212
  2. COMBIVIR [Suspect]
     Dosage: 150/300 MG, ORAL
     Route: 048
     Dates: start: 20111205, end: 20111205

REACTIONS (2)
  - NECK MASS [None]
  - SMALL CELL LUNG CANCER STAGE UNSPECIFIED [None]
